FAERS Safety Report 5996785-3 (Version None)
Quarter: 2008Q4

REPORT INFORMATION
  Report Type: 
  Country: None (occurrence: None)
  Receive Date: 20081212
  Receipt Date: 20081024
  Transmission Date: 20090506
  Serious: No
  Sender: FDA-Public Use
  Company Number: US-ABBOTT-08P-163-0483855-00

PATIENT
  Sex: Female
  Weight: 52.21 kg

DRUGS (2)
  1. HUMIRA [Suspect]
     Indication: RHEUMATOID ARTHRITIS
     Route: 058
     Dates: start: 20080701
  2. BUDESONIDE [Concomitant]
     Indication: CROHN'S DISEASE
     Route: 048
     Dates: start: 20060101

REACTIONS (1)
  - INCORRECT DOSE ADMINISTERED [None]
